FAERS Safety Report 6447125-7 (Version None)
Quarter: 2009Q4

REPORT INFORMATION
  Report Type: 
  Country: None (occurrence: None)
  Receive Date: 20091119
  Receipt Date: 20091106
  Transmission Date: 20100525
  Serious: Yes (Hospitalization, Other)
  Sender: FDA-Public Use
  Company Number: FR-PFIZER INC-2009287217

PATIENT
  Age: 79 Year
  Sex: Male
  Weight: 84 kg

DRUGS (4)
  1. LYRICA [Suspect]
     Indication: NEURALGIA
     Dosage: 75 MG, 2X/DAY
     Route: 048
     Dates: start: 20081205, end: 20090613
  2. VASTEN [Concomitant]
     Dosage: 1 DF, 1X/DAY
     Route: 048
  3. CORENITEC [Concomitant]
     Dosage: 1 DF, 1X/DAY
  4. DOLIPRANE [Concomitant]
     Dosage: 1 DF, 1X/DAY

REACTIONS (3)
  - PROSTATE CANCER [None]
  - RENAL FAILURE ACUTE [None]
  - URINARY RETENTION [None]
